FAERS Safety Report 5799481-0 (Version None)
Quarter: 2008Q3

REPORT INFORMATION
  Report Type: 
  Country: None (occurrence: None)
  Receive Date: 20080701
  Receipt Date: 20080701
  Transmission Date: 20090109
  Serious: No
  Sender: FDA-Public Use
  Company Number: None

PATIENT
  Age: 51 Year
  Sex: Female
  Weight: 71.6683 kg

DRUGS (2)
  1. LEVAQUIN [Suspect]
     Indication: DIARRHOEA
     Dosage: 1 TABLET ONCE DAILY  PO
     Route: 048
     Dates: start: 20080627, end: 20080630
  2. LEVAQUIN [Suspect]
     Indication: ENTERITIS INFECTIOUS
     Dosage: 1 TABLET ONCE DAILY  PO
     Route: 048
     Dates: start: 20080627, end: 20080630

REACTIONS (3)
  - INJECTION SITE DISCOLOURATION [None]
  - INJECTION SITE PAIN [None]
  - VULVOVAGINAL PRURITUS [None]
